FAERS Safety Report 4781068-X (Version None)
Quarter: 2005Q4

REPORT INFORMATION
  Report Type: 
  Country: None (occurrence: None)
  Receive Date: 20050926
  Receipt Date: 20050920
  Transmission Date: 20060501
  Serious: Yes (Hospitalization)
  Sender: FDA-Public Use
  Company Number: A044-002-005751

PATIENT
  Age: 90 Year
  Sex: Male
  Weight: 50 kg

DRUGS (4)
  1. ARICEPT [Suspect]
     Indication: DEMENTIA
     Dosage: 10 MG, 1 IN 1D, ORAL
     Route: 048
     Dates: start: 20011112, end: 20021101
  2. PRAVASTATIN [Concomitant]
  3. MOLSIDOMIN                 (MOLSIDOMINE) [Concomitant]
  4. ISOSORBIDE DINITRATE [Concomitant]

REACTIONS (2)
  - ATRIOVENTRICULAR BLOCK SECOND DEGREE [None]
  - BRADYCARDIA [None]
